FAERS Safety Report 9779073 (Version 1)
Quarter: 2013Q4

REPORT INFORMATION
  Report Type: Spontaneous
  Country: CL (occurrence: CL)
  Receive Date: 20131223
  Receipt Date: 20131223
  Transmission Date: 20140711
  Serious: Yes (Other)
  Sender: FDA-Public Use
  Company Number: CL-PFIZER INC-2013363609

PATIENT
  Sex: Female

DRUGS (3)
  1. XALATAN [Suspect]
     Indication: VISUAL IMPAIRMENT
     Dosage: 1 DROP PER EYE AT NIGHT
     Route: 047
     Dates: end: 201310
  2. BIOPLUS [Concomitant]
  3. ARTIFICIAL TEARS [Concomitant]

REACTIONS (2)
  - Glaucoma [Unknown]
  - Cataract [Unknown]
